FAERS Safety Report 23394568 (Version 1)
Quarter: 2024Q1

REPORT INFORMATION
  Report Type: Spontaneous
  Country: CA (occurrence: CA)
  Receive Date: 20240112
  Receipt Date: 20240112
  Transmission Date: 20240410
  Serious: Yes (Hospitalization)
  Sender: FDA-Public Use
  Company Number: CA-AMGEN-CANSP2024004708

PATIENT
  Sex: Female

DRUGS (1)
  1. ADALIMUMAB [Suspect]
     Active Substance: ADALIMUMAB\ISOPROPYL ALCOHOL
     Indication: Psoriasis
     Dosage: 40 MILLIGRAM/ 0.8 MILLILITER, QWK
     Route: 058

REACTIONS (8)
  - Fall [Unknown]
  - Haematological infection [Unknown]
  - Hypokinesia [Unknown]
  - Nerve injury [Unknown]
  - Blood glucose increased [Unknown]
  - Chronic lymphocytic leukaemia [Unknown]
  - Hypoaesthesia [Unknown]
  - Pulmonary embolism [Unknown]
